FAERS Safety Report 8791245 (Version 1)
Quarter: 2012Q4

REPORT INFORMATION
  Report Type: Spontaneous
  Country: GB (occurrence: None)
  Receive Date: 20120912
  Receipt Date: 20120912
  Transmission Date: 20130627
  Serious: Yes (Life-Threatening)
  Sender: FDA-Public Use
  Company Number: DKLU1084429

PATIENT
  Age: 60 Year
  Sex: Male

DRUGS (6)
  1. ONFI [Suspect]
     Indication: CONVULSION
     Dates: start: 20120822
  2. SODIUM VALPROATE [Suspect]
     Dates: start: 20120615
  3. EPILIM CHRONOSPHERE (VALPROATE SODIUM) [Concomitant]
  4. LOPERAMIDE (LOPERAMIDE) [Concomitant]
  5. MIDAZOLAM (MIDAZOLAM) [Concomitant]
  6. OLANZAPINE (OLANZAPINE) [Concomitant]

REACTIONS (1)
  - Ventricular tachycardia [None]
